FAERS Safety Report 4953672-7 (Version None)
Quarter: 2006Q1

REPORT INFORMATION
  Report Type: 
  Country: None (occurrence: None)
  Receive Date: 20060321
  Receipt Date: 20060314
  Transmission Date: 20060701
  Serious: Yes (Hospitalization, Other)
  Sender: FDA-Public Use
  Company Number: HQWYE347315MAR06

PATIENT
  Age: 57 Year
  Sex: Male
  Weight: 59 kg

DRUGS (2)
  1. TYGACIL [Suspect]
     Indication: ACINETOBACTER INFECTION
     Dosage: 100 MG LOADING DOSE THEN 50 MG EVERY 12 HOURS
     Dates: start: 20060226, end: 20060311
  2. TYGACIL [Suspect]
     Indication: PATHOGEN RESISTANCE
     Dosage: 100 MG LOADING DOSE THEN 50 MG EVERY 12 HOURS
     Dates: start: 20060226, end: 20060311

REACTIONS (2)
  - CONVULSION [None]
  - HYPONATRAEMIA [None]
